FAERS Safety Report 8197642-7 (Version None)
Quarter: 2012Q1

REPORT INFORMATION
  Report Type: 
  Country: None (occurrence: None)
  Receive Date: 20120309
  Receipt Date: 20120224
  Transmission Date: 20120608
  Serious: Yes (Death)
  Sender: FDA-Public Use
  Company Number: US-ENDO PHARMACEUTICALS INC.-HCDA20110090

PATIENT
  Sex: Male

DRUGS (14)
  1. NITROSTAT [Concomitant]
     Indication: CHEST PAIN
     Dosage: 0.4 MG
     Route: 060
     Dates: end: 20111105
  2. HYDROCODONE BITARTRATE AND ACETAMINOPHEN [Suspect]
     Indication: PAIN
     Dosage: 5/325 MG
     Route: 048
  3. NITROSTAT [Concomitant]
     Indication: DYSPNOEA
  4. GLIPIZIDE [Concomitant]
     Indication: PRODUCT USED FOR UNKNOWN INDICATION
     Route: 048
     Dates: end: 20111105
  5. SIMETHICONE [Concomitant]
     Indication: ABDOMINAL DISTENSION
     Dosage: 80 MG
     Route: 048
     Dates: end: 20111105
  6. FUROSEMIDE [Concomitant]
     Indication: PRODUCT USED FOR UNKNOWN INDICATION
     Route: 048
     Dates: end: 20111105
  7. PROCHLORPERAZINE [Concomitant]
     Indication: VOMITING
  8. NIFEDIPINE [Concomitant]
     Indication: PRODUCT USED FOR UNKNOWN INDICATION
     Route: 048
     Dates: end: 20111105
  9. OMEPRAZOLE [Concomitant]
     Indication: PRODUCT USED FOR UNKNOWN INDICATION
     Route: 048
     Dates: end: 20111105
  10. MORPHINE [Concomitant]
     Indication: PRODUCT USED FOR UNKNOWN INDICATION
     Dosage: UNK
     Route: 065
     Dates: end: 20111105
  11. LORAZEPAM [Concomitant]
     Indication: RESTLESSNESS
     Dosage: 0.5 MG
     Route: 065
     Dates: end: 20111105
  12. PROCHLORPERAZINE [Concomitant]
     Indication: NAUSEA
     Dosage: 5 MG
     Route: 048
     Dates: end: 20111105
  13. SPIRONOLACTONE [Concomitant]
     Indication: PRODUCT USED FOR UNKNOWN INDICATION
     Route: 065
     Dates: end: 20111105
  14. SIMETHICONE [Concomitant]
     Indication: FLATULENCE

REACTIONS (1)
  - DEATH [None]
